FAERS Safety Report 19347408 (Version 1)
Quarter: 2021Q2

REPORT INFORMATION
  Report Type: Spontaneous
  Country: US (occurrence: US)
  Receive Date: 20210531
  Receipt Date: 20210531
  Transmission Date: 20210717
  Serious: No
  Sender: FDA-Public Use
  Company Number: US-KVK-TECH, INC-20210500057

PATIENT
  Age: 67 Year
  Sex: Female
  Weight: 61.22 kg

DRUGS (3)
  1. ARMOUR THYROID [Concomitant]
     Active Substance: THYROID, PORCINE
     Indication: HYPOTHYROIDISM
     Dosage: 60 MILLIGRAM, QD
  2. URSODIOL CAPSULES [Suspect]
     Active Substance: URSODIOL
     Dosage: 300 UNK
     Dates: start: 20210416
  3. URSODIOL CAPSULES [Suspect]
     Active Substance: URSODIOL
     Indication: PRIMARY BILIARY CHOLANGITIS
     Dosage: 300 MILLIGRAM
     Route: 048
     Dates: start: 20201117, end: 20210330

REACTIONS (7)
  - Oral discomfort [Unknown]
  - Tongue discolouration [Unknown]
  - Tongue discomfort [Unknown]
  - Plicated tongue [Unknown]
  - Tongue disorder [Unknown]
  - Hypoaesthesia oral [Unknown]
  - Parosmia [Unknown]

NARRATIVE: CASE EVENT DATE: 202011
